FAERS Safety Report 26054353 (Version 1)
Quarter: 2025Q4

REPORT INFORMATION
  Report Type: Report from Study
  Country: EU (occurrence: EU)
  Receive Date: 20251117
  Receipt Date: 20251117
  Transmission Date: 20260119
  Serious: Yes (Life-Threatening, Hospitalization, Other)
  Sender: PFIZER
  Company Number: EU-PFIZER INC-PV202500134423

PATIENT
  Age: 1 Day
  Sex: Male

DRUGS (2)
  1. CARBOPLATIN [Suspect]
     Active Substance: CARBOPLATIN
     Indication: Neuroblastoma
     Dosage: 6.6 MG/KG, CYCLIC (DAYS 1-3), COURSE 1
  2. ETOPOSIDE [Suspect]
     Active Substance: ETOPOSIDE
     Indication: Neuroblastoma
     Dosage: 5 MG/KG, CYCLIC (DAYS 1-3), COURSE 1

REACTIONS (6)
  - Staphylococcal sepsis [Unknown]
  - Staphylococcal sepsis [Unknown]
  - Septic shock [Unknown]
  - Tumour lysis syndrome [Unknown]
  - Acute kidney injury [Unknown]
  - Congenital aplasia [Unknown]
